FAERS Safety Report 12610558 (Version 1)
Quarter: 2016Q3

REPORT INFORMATION
  Report Type: Spontaneous
  Country: US (occurrence: US)
  Receive Date: 20160801
  Receipt Date: 20160801
  Transmission Date: 20161109
  Serious: Yes (Other)
  Sender: FDA-Public Use
  Company Number: US-BAYER-2016-144303

PATIENT
  Age: 31 Year
  Sex: Female

DRUGS (2)
  1. SKYLA [Suspect]
     Active Substance: LEVONORGESTREL
     Indication: CONTRACEPTION
     Dosage: 14 MCG/24HR, CONT
     Route: 015
     Dates: start: 201511
  2. AZITHROMYCINE [Suspect]
     Active Substance: AZITHROMYCIN DIHYDRATE
     Indication: LUNG INFECTION
     Dosage: UNK
     Dates: start: 2016

REACTIONS (4)
  - Nephrolithiasis [None]
  - Post procedural haemorrhage [None]
  - Genital haemorrhage [Not Recovered/Not Resolved]
  - Lung infection [None]

NARRATIVE: CASE EVENT DATE: 2015
